FAERS Safety Report 4602152-7 (Version None)
Quarter: 2005Q2

REPORT INFORMATION
  Report Type: 
  Country: None (occurrence: None)
  Receive Date: 20050207
  Receipt Date: 20040817
  Transmission Date: 20051028
  Serious: Yes (Other)
  Sender: FDA-Public Use
  Company Number: HQ7060212OCT2001

PATIENT
  Age: 8 Year
  Sex: Male
  Weight: 30.1 kg

DRUGS (2)
  1. REFACTO [Suspect]
     Indication: FACTOR VIII DEFICIENCY
     Dosage: 760 IU, INTRAVENOUS
     Route: 042
     Dates: start: 20010630, end: 20010914
  2. REFACTO [Suspect]
     Dosage: 22U/KG,16 U/KG IN VITRO ASSAY
     Route: 042

REACTIONS (3)
  - COAGULATION FACTOR VIII LEVEL DECREASED [None]
  - DRUG INEFFECTIVE [None]
  - HAEMORRHAGE [None]
